FAERS Safety Report 9119616 (Version 2)
Quarter: 2014Q3

REPORT INFORMATION
  Report Type: Report from Study
  Country: US (occurrence: US)
  Receive Date: 20130226
  Receipt Date: 20140808
  Transmission Date: 20150326
  Serious: Yes (Death, Other)
  Sender: FDA-Public Use
  Company Number: US-CELGENEUS-163-21880-13022939

PATIENT

DRUGS (1)
  1. REVLIMID [Suspect]
     Active Substance: LENALIDOMIDE
     Indication: PLASMA CELL MYELOMA
     Dosage: 10 MG DAILY WITH 5 MG INCREMENTS TO 25 MG
     Route: 048

REACTIONS (12)
  - Rash [Unknown]
  - Pain [Unknown]
  - Liver function test abnormal [Unknown]
  - Chronic graft versus host disease [Unknown]
  - Neutropenia [Unknown]
  - Transplantation complication [Fatal]
  - Thrombocytopenia [Unknown]
  - Acute graft versus host disease [Unknown]
  - Syncope [Unknown]
  - Infection [Unknown]
  - Pyrexia [Unknown]
  - Plasma cell myeloma [Unknown]
